FAERS Safety Report 13642396 (Version 8)
Quarter: 2018Q1

REPORT INFORMATION
  Report Type: Report from Study
  Country: CA (occurrence: CA)
  Receive Date: 20170612
  Receipt Date: 20180227
  Transmission Date: 20180508
  Serious: Yes (Other)
  Sender: FDA-Public Use
  Company Number: CA-GLAXOSMITHKLINE-CA2017GSK088620

PATIENT
  Age: 55 Year
  Sex: Female

DRUGS (5)
  1. PREDNISONE. [Concomitant]
     Active Substance: PREDNISONE
     Indication: PRODUCT USED FOR UNKNOWN INDICATION
     Dosage: UNK
  2. MEPOLIZUMAB [Suspect]
     Active Substance: MEPOLIZUMAB
     Dosage: 100 MG, Z
     Route: 042
     Dates: start: 20170510
  3. MEPOLIZUMAB [Suspect]
     Active Substance: MEPOLIZUMAB
     Dosage: 100 MG, Z
     Route: 042
  4. MEPOLIZUMAB [Suspect]
     Active Substance: MEPOLIZUMAB
     Dosage: 100 MG, Z (MONTHLY)
     Route: 042
  5. MEPOLIZUMAB [Suspect]
     Active Substance: MEPOLIZUMAB
     Indication: ASTHMA
     Dosage: 100 MG, Z
     Route: 042
     Dates: start: 20170411

REACTIONS (16)
  - Influenza [Recovered/Resolved]
  - Upper respiratory tract infection [Not Recovered/Not Resolved]
  - Nasopharyngitis [Recovering/Resolving]
  - Urinary retention [Unknown]
  - Therapeutic response shortened [Unknown]
  - Back pain [Unknown]
  - Urinary tract infection [Unknown]
  - Malaise [Unknown]
  - Pneumonia [Unknown]
  - Infection [Unknown]
  - Pain [Unknown]
  - Cough [Unknown]
  - Lung disorder [Unknown]
  - Otorrhoea [Unknown]
  - Discomfort [Unknown]
  - Dyspnoea [Unknown]

NARRATIVE: CASE EVENT DATE: 20170601
